FAERS Safety Report 8205028-1 (Version None)
Quarter: 2012Q1

REPORT INFORMATION
  Report Type: 
  Country: None (occurrence: None)
  Receive Date: 20120309
  Receipt Date: 20120224
  Transmission Date: 20120608
  Serious: Yes (Death)
  Sender: FDA-Public Use
  Company Number: 2012-097

PATIENT
  Age: 88 Year
  Sex: Female

DRUGS (1)
  1. FAZACLO ODT [Suspect]
     Dosage: 25 - 50 MG QD, ORAL
     Route: 048
     Dates: start: 20090610

REACTIONS (1)
  - DEATH [None]
